FAERS Safety Report 24611046 (Version 1)
Quarter: 2024Q4

REPORT INFORMATION
  Report Type: Spontaneous
  Country: CN (occurrence: CN)
  Receive Date: 20241113
  Receipt Date: 20241113
  Transmission Date: 20250115
  Serious: Yes (Hospitalization)
  Sender: NOVO NORDISK
  Company Number: CN-NOVOPROD-1311431

PATIENT
  Age: 52 Year
  Sex: Female
  Weight: 85 kg

DRUGS (2)
  1. INSULIN ASPART [Suspect]
     Active Substance: INSULIN ASPART
     Indication: Type 2 diabetes mellitus
     Dosage: UNK
     Dates: start: 20141127
  2. INSULIN ASPART [Suspect]
     Active Substance: INSULIN ASPART
     Indication: Type 2 diabetes mellitus
     Dosage: UNK
     Dates: start: 20141127

REACTIONS (3)
  - Diabetic ketoacidosis [Unknown]
  - Exostosis [Unknown]
  - Ligament injury [Unknown]

NARRATIVE: CASE EVENT DATE: 20231224
